FAERS Safety Report 24409527 (Version 1)
Quarter: 2024Q4

REPORT INFORMATION
  Report Type: Spontaneous
  Country: AR (occurrence: AR)
  Receive Date: 20241008
  Receipt Date: 20241008
  Transmission Date: 20250114
  Serious: Yes (Other)
  Sender: SANDOZ
  Company Number: AR-SANDOZ-SDZ2024AR084843

PATIENT
  Sex: Male
  Weight: 35 kg

DRUGS (1)
  1. OMNITROPE [Suspect]
     Active Substance: SOMATROPIN
     Indication: Growth hormone deficiency
     Dosage: 0.6 MG, QD (7 TIMES A WEEK)
     Route: 058
     Dates: start: 20210310

REACTIONS (2)
  - Skeletal dysplasia [Unknown]
  - Drug ineffective [Unknown]
